FAERS Safety Report 8214046-9 (Version None)
Quarter: 2012Q1

REPORT INFORMATION
  Report Type: 
  Country: None (occurrence: None)
  Receive Date: 20120314
  Receipt Date: 20120314
  Transmission Date: 20120608
  Serious: No
  Sender: FDA-Public Use
  Company Number: None

PATIENT
  Weight: 62.1428 kg

DRUGS (1)
  1. VENLAFAXINE HYDROCHLORIDE [Suspect]
     Dosage: EFFEXOR 150MG QD PO LIFETIME
     Route: 048
     Dates: start: 20110101

REACTIONS (1)
  - ANXIETY [None]
